FAERS Safety Report 10489257 (Version 2)
Quarter: 2014Q4

REPORT INFORMATION
  Report Type: Spontaneous
  Country: FR (occurrence: FR)
  Receive Date: 20141002
  Receipt Date: 20141029
  Transmission Date: 20150528
  Serious: Yes (Other)
  Sender: FDA-Public Use
  Company Number: FR-JNJFOC-20140925670

PATIENT
  Age: 19 Year
  Sex: Female
  Weight: 77 kg

DRUGS (8)
  1. THERALITE [Concomitant]
     Active Substance: LITHIUM CARBONATE
     Indication: THYMUS DISORDER
     Dosage: THERALITHE LP? 400 (ORAL): 0-0-2.5 FOR THYMIC REGULATION (ONGOING DRUG)
     Route: 065
  2. VALIUM [Concomitant]
     Active Substance: DIAZEPAM
     Indication: ANXIOLYTIC THERAPY
     Route: 048
  3. TEGRETOL [Concomitant]
     Active Substance: CARBAMAZEPINE
     Indication: THYMUS DISORDER
     Dosage: TEGRETOL LP? 400  0-0-1 FOR THYMIC REGULATION
     Route: 048
  4. XEPLION [Suspect]
     Active Substance: PALIPERIDONE PALMITATE
     Indication: PSYCHOTIC DISORDER
     Dosage: SINCE AT LESS 10 MONTHS
     Route: 030
     Dates: start: 20140403, end: 20140919
  5. LEPTICUR [Concomitant]
     Active Substance: TROPATEPINE HYDROCHLORIDE
     Indication: EXTRAPYRAMIDAL DISORDER
     Dosage: LEPTICUR? 10 MG (ORAL): 1-1-1 FOR EXTRAPYRAMIDAL SYNDROME
     Route: 048
  6. HEPTAMINOL [Concomitant]
     Active Substance: HEPTAMINOL
     Indication: HYPOTENSION
     Dosage: HEPTAMYL? (ORAL): 1-1-1 FOR HYPOTENSION (ONGOING DRUG)
     Route: 048
  7. EUPANTOL [Concomitant]
     Active Substance: PANTOPRAZOLE SODIUM
     Indication: GASTROOESOPHAGEAL REFLUX DISEASE
     Dosage: EUPANTOL? 20 MG (ORAL): 0-0-1 FOR GERD (ONGOING DRUG)
     Route: 048
  8. LEVOTHYROX [Concomitant]
     Active Substance: LEVOTHYROXINE
     Indication: HYPOTHYROIDISM
     Dosage: LEVOTHYROX? 75?G (ORAL): 1-0-0 FOR HYPOTHYROIDISM
     Route: 048

REACTIONS (3)
  - Injection site infection [Recovering/Resolving]
  - Injection site reaction [Unknown]
  - Injection site nodule [Recovering/Resolving]

NARRATIVE: CASE EVENT DATE: 20140918
